FAERS Safety Report 9672466 (Version 2)
Quarter: 2013Q4

REPORT INFORMATION
  Report Type: Spontaneous
  Country: US (occurrence: US)
  Receive Date: 20131106
  Receipt Date: 20131106
  Transmission Date: 20140711
  Serious: Yes (Other)
  Sender: FDA-Public Use
  Company Number: US-TAKEDA-2013TUS000057

PATIENT
  Sex: 0

DRUGS (4)
  1. ACTOS [Suspect]
     Indication: TYPE 2 DIABETES MELLITUS
     Dosage: 30 MG, UNK
     Dates: start: 200801, end: 201111
  2. METFORMIN [Concomitant]
     Dosage: 500 MG, UNK
     Dates: start: 2005, end: 2010
  3. LANTUS [Concomitant]
     Dosage: 20 IU, UNK
     Dates: start: 2013
  4. JANUVIA [Concomitant]
     Dosage: 100 MG, UNK
     Dates: start: 2007, end: 2012

REACTIONS (2)
  - Haematuria [Unknown]
  - Bladder cancer [Unknown]
